FAERS Safety Report 17996530 (Version 2)
Quarter: 2020Q3

REPORT INFORMATION
  Report Type: Spontaneous
  Country: US (occurrence: US)
  Receive Date: 20200709
  Receipt Date: 20200709
  Transmission Date: 20201103
  Serious: No
  Sender: FDA-Public Use
  Company Number: US-BEH-2020119831

PATIENT
  Age: 59 Year
  Sex: Male

DRUGS (1)
  1. HAEGARDA [Suspect]
     Active Substance: HUMAN C1-ESTERASE INHIBITOR
     Dosage: 6000 INTERNATIONAL UNIT
     Route: 042
     Dates: start: 201910

REACTIONS (3)
  - No adverse event [Unknown]
  - Product preparation issue [Unknown]
  - Device issue [Unknown]

NARRATIVE: CASE EVENT DATE: 20200706
